FAERS Safety Report 23643304 (Version 1)
Quarter: 2024Q1

REPORT INFORMATION
  Report Type: Other
  Country: CN (occurrence: CN)
  Receive Date: 20240318
  Receipt Date: 20240318
  Transmission Date: 20240409
  Serious: Yes (Other)
  Sender: FDA-Public Use
  Company Number: CN-PARATEK PHARMACEUTICALS, INC.-2024PTK00190

PATIENT
  Age: 51 Year
  Sex: Male

DRUGS (1)
  1. NUZYRA [Suspect]
     Active Substance: OMADACYCLINE
     Indication: Pneumonia
     Dosage: 0.1 G, 1X/DAY
     Route: 041
     Dates: start: 20240226, end: 20240228

REACTIONS (2)
  - Rash [Recovering/Resolving]
  - Incorrect dose administered [Recovered/Resolved]

NARRATIVE: CASE EVENT DATE: 20240226
